FAERS Safety Report 5608686-0 (Version None)
Quarter: 2008Q1

REPORT INFORMATION
  Report Type: 
  Country: None (occurrence: None)
  Receive Date: 20080131
  Receipt Date: 20080122
  Transmission Date: 20080703
  Serious: Yes (Other)
  Sender: FDA-Public Use
  Company Number: US-PFIZER INC-2008008275

PATIENT
  Sex: Female
  Weight: 81.6 kg

DRUGS (6)
  1. LIPITOR [Suspect]
     Indication: BLOOD CHOLESTEROL INCREASED
     Dosage: DAILY DOSE:20MG-FREQ:DAILY
  2. LIPITOR [Suspect]
     Dosage: DAILY DOSE:40MG-FREQ:DAILY
  3. ALTACE [Concomitant]
  4. ASPIRIN [Concomitant]
  5. DYAZIDE [Concomitant]
  6. ASCORBIC ACID [Concomitant]

REACTIONS (4)
  - ARTHRITIS [None]
  - BLOOD CHOLESTEROL DECREASED [None]
  - BODY HEIGHT DECREASED [None]
  - MUSCULAR WEAKNESS [None]
